FAERS Safety Report 8933430 (Version 1)
Quarter: 2012Q4

REPORT INFORMATION
  Report Type: Report from Study
  Country: IN (occurrence: IN)
  Receive Date: 20121128
  Receipt Date: 20121128
  Transmission Date: 20130627
  Serious: Yes (Hospitalization)
  Sender: FDA-Public Use
  Company Number: IN-PFIZER INC-2012295560

PATIENT
  Age: 49 Year
  Sex: Male

DRUGS (23)
  1. CISPLATIN [Suspect]
     Indication: SQUAMOUS CELL CARCINOMA
     Dosage: 35 mg/m2/day
     Route: 042
     Dates: start: 20120924, end: 20121008
  2. P276-00 [Suspect]
     Indication: SQUAMOUS CELL CARCINOMA
     Dosage: 100 mg/m2/day
     Route: 042
     Dates: start: 20120924, end: 20120928
  3. RANITIDINE [Concomitant]
     Indication: GASTRITIS PROPHYLAXIS
     Dosage: 300 mg, UNK
     Route: 048
     Dates: start: 20120906
  4. DICLOFENAC SODIUM [Concomitant]
     Indication: THROAT PAIN
     Dosage: 50 mg, UNK
     Route: 048
     Dates: start: 20120912
  5. SERRATIOPEPTIDASE [Concomitant]
     Indication: THROAT PAIN
     Dosage: 15 mg, UNK
     Route: 048
     Dates: start: 20120912
  6. ACETAMINOPHEN [Concomitant]
     Dosage: 10 mg, UNK
     Route: 048
     Dates: start: 20120912
  7. PALONOSETRON [Concomitant]
     Indication: PROPHYLAXIS
     Dosage: UNK
     Route: 042
     Dates: start: 20121001, end: 20121001
  8. DEXAMETHASONE [Concomitant]
     Indication: PROPHYLAXIS
     Dosage: 8 mg, UNK
     Route: 042
     Dates: start: 20121001, end: 20121001
  9. RANITIDINE [Concomitant]
     Indication: PROPHYLAXIS
     Dosage: 50 mg, UNK
     Route: 039
     Dates: start: 20121001, end: 20121001
  10. MANNITOL [Concomitant]
     Indication: PROPHYLAXIS
     Dosage: 20 mg, UNK
     Route: 042
     Dates: start: 20121001, end: 20121001
  11. POTASSIUM CHLORIDE [Concomitant]
     Indication: PROPHYLAXIS
     Dosage: 150 mg, UNK
     Route: 042
     Dates: start: 20121008, end: 20121008
  12. MAGNESIUM SULPHATE PASTE [Concomitant]
     Indication: PROPHYLAXIS
     Dosage: 500 mg, UNK
     Route: 042
     Dates: start: 20121001, end: 20121001
  13. PALONOSETRON [Concomitant]
     Indication: PROPHYLAXIS
     Dosage: UNK
     Route: 042
     Dates: start: 20121008, end: 20121008
  14. DEXAMETHASONE [Concomitant]
     Indication: PROPHYLAXIS
     Dosage: 8 mg, UNK
     Route: 042
     Dates: start: 20121008, end: 20121008
  15. RANITIDINE [Concomitant]
     Indication: PROPHYLAXIS
     Dosage: 50 mg, UNK
     Route: 042
     Dates: start: 20121008, end: 20121008
  16. MANNITOL [Concomitant]
     Indication: PROPHYLAXIS
     Dosage: 20 g, UNK
     Route: 042
     Dates: start: 20121008, end: 20121008
  17. MAGNESIUM SULPHATE PASTE [Concomitant]
     Indication: PROPHYLAXIS
     Dosage: 500 mg, UNK
     Route: 042
     Dates: start: 20121008, end: 20121008
  18. POTASSIUM CHLORIDE [Concomitant]
     Indication: PROPHYLAXIS
     Dosage: 150 mg, UNK
     Route: 042
     Dates: start: 20121008, end: 20121008
  19. GRANISETRON [Concomitant]
     Indication: PROPHYLAXIS
     Dosage: 1 mg, UNK
     Route: 048
     Dates: start: 20121008, end: 20121008
  20. PEPTICAINE [Concomitant]
     Indication: ANOREXIA
     Dosage: 30 mg, UNK
     Route: 048
     Dates: start: 20121008
  21. ALUMINIUM HYDROXIDE [Concomitant]
     Indication: ANOREXIA
     Dosage: 750 mg, UNK
     Route: 048
     Dates: start: 20121008
  22. MAGNESIUM HYDROXIDE [Concomitant]
     Indication: ANOREXIA
     Dosage: 750 mg, UNK
     Route: 048
     Dates: start: 20121008
  23. DIMETHOCAINE [Concomitant]
     Indication: ANOREXIA
     Dosage: 150 mg, UNK
     Route: 048
     Dates: start: 20121008

REACTIONS (2)
  - Dysphagia [Unknown]
  - Vomiting [Recovered/Resolved]
